FAERS Safety Report 18610607 (Version 1)
Quarter: 2020Q4

REPORT INFORMATION
  Report Type: Spontaneous
  Country: FR (occurrence: FR)
  Receive Date: 20201214
  Receipt Date: 20201214
  Transmission Date: 20210114
  Serious: Yes (Hospitalization)
  Sender: FDA-Public Use
  Company Number: FR-PFIZER INC-2020486433

PATIENT
  Age: 28 Year
  Sex: Female
  Weight: 63 kg

DRUGS (16)
  1. LANSOPRAZOLE. [Concomitant]
     Active Substance: LANSOPRAZOLE
     Indication: GASTROOESOPHAGEAL REFLUX PROPHYLAXIS
     Dosage: 15 MG, 1X/DAY
     Route: 048
     Dates: start: 20190212, end: 202010
  2. UN-ALFA [Concomitant]
     Active Substance: ALFACALCIDOL
     Indication: PARATHYROIDECTOMY
     Dosage: 2 DF, 1X/DAY
     Route: 048
     Dates: start: 20200724, end: 20201117
  3. ABACAVIR. [Concomitant]
     Active Substance: ABACAVIR
     Indication: HIV INFECTION
     Dosage: 600 MG, 1X/DAY
     Route: 048
     Dates: start: 2018
  4. SODIUM BICARBONATE. [Concomitant]
     Active Substance: SODIUM BICARBONATE
     Dosage: 1500 MG, 1X/DAY
     Route: 048
     Dates: start: 20190212
  5. DOLIPRANE [Concomitant]
     Active Substance: ACETAMINOPHEN
     Indication: ANALGESIC THERAPY
     Dosage: 3 DF, 1X/DAY
     Route: 048
  6. WARFARIN SODIUM. [Concomitant]
     Active Substance: WARFARIN SODIUM
     Indication: THROMBOSIS PROPHYLAXIS
     Dosage: 7 MG, 1X/DAY
     Route: 048
     Dates: start: 20200724
  7. LERCANIDIPINE [Concomitant]
     Active Substance: LERCANIDIPINE
     Indication: HYPERTENSION
     Dosage: 20 MG, 1X/DAY
     Route: 048
     Dates: start: 202010, end: 20201107
  8. CALCIDIA [Concomitant]
     Active Substance: CALCIUM CARBONATE
     Indication: MINERAL SUPPLEMENTATION
     Dosage: 3 DF, 1X/DAY
     Route: 048
     Dates: start: 20200617
  9. LAROSCORBINE [Concomitant]
     Active Substance: ASCORBIC ACID
     Route: 048
     Dates: start: 20200724
  10. FUROSEMIDE. [Concomitant]
     Active Substance: FUROSEMIDE
     Dosage: 750 MG, 1X/DAY (500-250 MG)
     Route: 048
     Dates: start: 20190212, end: 20201107
  11. LAMIVUDINE. [Concomitant]
     Active Substance: LAMIVUDINE
     Indication: HIV INFECTION
     Dosage: 50 MG, 1X/DAY
     Route: 048
     Dates: start: 2018
  12. RALTEGRAVIR. [Concomitant]
     Active Substance: RALTEGRAVIR
     Indication: HIV INFECTION
     Dosage: 1200 MG, 1X/DAY
     Route: 048
     Dates: start: 2018
  13. DOSTINEX [Suspect]
     Active Substance: CABERGOLINE
     Indication: HYPERPROLACTINAEMIA
     Dosage: 1 MG, 1X/DAY (2DF)
     Route: 048
     Dates: start: 20190212, end: 20201111
  14. CIRCADIN [Concomitant]
     Active Substance: MELATONIN
     Indication: INSOMNIA
     Dosage: 1 DF, 1X/DAY
     Route: 048
     Dates: start: 20200724
  15. UVEDOSE [Concomitant]
     Active Substance: CHOLECALCIFEROL
     Indication: VITAMIN D DEFICIENCY
     Dosage: 1 DF, MONTHLY
     Route: 048
     Dates: start: 20190212
  16. ACIDE FOLIQUE [Concomitant]
     Active Substance: FOLIC ACID
     Indication: FOLATE DEFICIENCY
     Dosage: 5 MG, 1X/DAY
     Route: 048
     Dates: start: 20200724

REACTIONS (2)
  - Incorrect dose administered [Recovering/Resolving]
  - Posterior reversible encephalopathy syndrome [Recovering/Resolving]

NARRATIVE: CASE EVENT DATE: 202008
